FAERS Safety Report 24781328 (Version 1)
Quarter: 2024Q4

REPORT INFORMATION
  Report Type: Spontaneous
  Country: PT (occurrence: PT)
  Receive Date: 20241227
  Receipt Date: 20241227
  Transmission Date: 20250114
  Serious: Yes (Life-Threatening, Hospitalization)
  Sender: STRIDES
  Company Number: PT-STRIDES ARCOLAB LIMITED-2024SP017024

PATIENT
  Age: 54 Year
  Sex: Male

DRUGS (1)
  1. METHOTREXATE [Suspect]
     Active Substance: METHOTREXATE
     Indication: Psoriasis
     Dosage: 7.5 MILLIGRAM, QD, PRESCRIBED: 12/12H ONCE PER WEEK; HOWEVER, HE TOOK THE DOSE DAILY INSTEAD OF WEEK
     Route: 065

REACTIONS (10)
  - Cardiac failure [Recovered/Resolved]
  - Inappropriate schedule of product administration [Unknown]
  - Product communication issue [Unknown]
  - Treatment noncompliance [Unknown]
  - Pneumonitis [Recovered/Resolved]
  - Neutropenia [Recovered/Resolved]
  - Pancytopenia [Recovered/Resolved]
  - Septic shock [Recovered/Resolved]
  - Renal failure [Recovered/Resolved]
  - Respiratory failure [Recovered/Resolved]
